FAERS Safety Report 6227785-6 (Version None)
Quarter: 2009Q2

REPORT INFORMATION
  Report Type: 
  Country: None (occurrence: None)
  Receive Date: 20090612
  Receipt Date: 20090602
  Transmission Date: 20091009
  Serious: Yes (Hospitalization)
  Sender: FDA-Public Use
  Company Number: PHHY2009FR21592

PATIENT
  Age: 16 Year
  Sex: Female

DRUGS (2)
  1. EXJADE [Suspect]
     Indication: IRON OVERLOAD
     Dosage: 625 MG, QD
     Dates: start: 20070101, end: 20090407
  2. ADVIL [Suspect]
     Dosage: 400 MG, TID
     Dates: start: 20090404

REACTIONS (11)
  - ABDOMINAL PAIN [None]
  - ANURIA [None]
  - BLOOD CREATININE INCREASED [None]
  - CONSTIPATION [None]
  - DIARRHOEA [None]
  - FANCONI SYNDROME [None]
  - KIDNEY ENLARGEMENT [None]
  - POLYURIA [None]
  - RENAL FAILURE ACUTE [None]
  - RENAL TUBULAR ACIDOSIS [None]
  - VOMITING [None]
